FAERS Safety Report 23706687 (Version 11)
Quarter: 2024Q2

REPORT INFORMATION
  Report Type: Spontaneous
  Country: CA (occurrence: CA)
  Receive Date: 20240404
  Receipt Date: 20240621
  Transmission Date: 20240716
  Serious: Yes (Hospitalization, Other)
  Sender: FDA-Public Use
  Company Number: CA-PFIZER INC-202400076861

PATIENT
  Age: 81 Year
  Sex: Male

DRUGS (23)
  1. ABRILADA [Suspect]
     Active Substance: ADALIMUMAB-AFZB
     Indication: Psoriatic arthropathy
     Dosage: 40 MG, EVERY 2 WEEK PREFILLED PEN
     Route: 058
     Dates: start: 20231128
  2. ABRILADA [Suspect]
     Active Substance: ADALIMUMAB-AFZB
     Dosage: 40 MG, EVERY 2 WEEK PREFILLED PEN
     Route: 058
     Dates: start: 20240318, end: 20240401
  3. ABRILADA [Suspect]
     Active Substance: ADALIMUMAB-AFZB
     Dosage: 40 MG (4 WEEKS AND 1 DAY)
     Route: 058
     Dates: start: 20240416
  4. ABRILADA [Suspect]
     Active Substance: ADALIMUMAB-AFZB
     Dosage: 40 MG, EVERY 2 WEEKS (AFTER 3 WEEKS AND 2 DAYS)
     Route: 058
     Dates: start: 20240509
  5. ABRILADA [Suspect]
     Active Substance: ADALIMUMAB-AFZB
     Dosage: 40 MG, EVERY 2 WEEK PREFILLED PEN
     Route: 058
     Dates: start: 20240523
  6. ABRILADA [Suspect]
     Active Substance: ADALIMUMAB-AFZB
     Dosage: 40 MG, EVERY 2 WEEK PREFILLED PEN (40 MG; AFTER 1 WEEK AND 6 DAYS)
     Route: 058
     Dates: start: 20240605
  7. ALENDRONATE [Concomitant]
     Active Substance: ALENDRONATE SODIUM
     Dosage: 1 DF
  8. CALCIUM [Concomitant]
     Active Substance: CALCIUM
     Dosage: 1 DF
  9. CIPRO [Concomitant]
     Active Substance: CIPROFLOXACIN\CIPROFLOXACIN HYDROCHLORIDE
     Dosage: 500 MG, QID
  10. DABIGATRAN [Concomitant]
     Active Substance: DABIGATRAN
     Dosage: 1 DF
  11. FERROUS GLUCONATE [Concomitant]
     Active Substance: FERROUS GLUCONATE
     Dosage: 1 DF
  12. FINASTERIDE [Concomitant]
     Active Substance: FINASTERIDE
     Dosage: 1 DF
  13. FOLIC ACID [Concomitant]
     Active Substance: FOLIC ACID
     Dosage: 1 DROP
  14. IRBESARTAN [Concomitant]
     Active Substance: IRBESARTAN
     Dosage: 1 DF
  15. LASIX [Concomitant]
     Active Substance: FUROSEMIDE
     Dosage: 1 DF
  16. METHOTREXATE [Concomitant]
     Active Substance: METHOTREXATE
     Indication: Psoriatic arthropathy
     Dosage: 10 MG, WEEKLY
     Route: 065
  17. METOPROLOL [Concomitant]
     Active Substance: METOPROLOL
     Dosage: 1 DF
  18. PREDNISONE [Concomitant]
     Active Substance: PREDNISONE
     Dosage: 40 MG, TAPERING DOSE
  19. PANTOPRAZOLE [Concomitant]
     Active Substance: PANTOPRAZOLE
     Dosage: 1 DF
  20. SULFASALAZINE [Concomitant]
     Active Substance: SULFASALAZINE
     Indication: Psoriatic arthropathy
     Dosage: 1 DF, DOSAGE NOT AVAILABLE - DISCONTINUED
     Route: 065
  21. TAMSULOSIN [Concomitant]
     Active Substance: TAMSULOSIN
     Dosage: 1 DF
  22. TYLENOL [Concomitant]
     Active Substance: ACETAMINOPHEN
     Dosage: 1 DF
  23. CHOLECALCIFEROL [Concomitant]
     Active Substance: CHOLECALCIFEROL
     Dosage: 1 DF

REACTIONS (10)
  - Intervertebral disc compression [Not Recovered/Not Resolved]
  - Erythema [Not Recovered/Not Resolved]
  - Peripheral swelling [Not Recovered/Not Resolved]
  - Condition aggravated [Not Recovered/Not Resolved]
  - Immobile [Not Recovered/Not Resolved]
  - Localised infection [Recovered/Resolved]
  - Cellulitis [Recovered/Resolved]
  - Gout [Not Recovered/Not Resolved]
  - Insomnia [Unknown]
  - Skin infection [Unknown]

NARRATIVE: CASE EVENT DATE: 20240101
